FAERS Safety Report 6200363-0 (Version None)
Quarter: 2009Q2

REPORT INFORMATION
  Report Type: 
  Country: None (occurrence: None)
  Receive Date: 20090522
  Receipt Date: 20090515
  Transmission Date: 20091009
  Serious: Yes (Other)
  Sender: FDA-Public Use
  Company Number: US-ROCHE-633856

PATIENT
  Sex: Female
  Weight: 62.6 kg

DRUGS (2)
  1. CAPECITABINE [Suspect]
     Route: 048
     Dates: start: 20090130, end: 20090501
  2. OXALIPLATIN [Suspect]
     Route: 065

REACTIONS (1)
  - DISEASE PROGRESSION [None]
